FAERS Safety Report 9144656 (Version 1)
Quarter: 2013Q1

REPORT INFORMATION
  Report Type: Report from Study
  Country: DE (occurrence: DE)
  Receive Date: 20130306
  Receipt Date: 20130306
  Transmission Date: 20140127
  Serious: Yes (Hospitalization)
  Sender: FDA-Public Use
  Company Number: DE-FRI-1000043083

PATIENT
  Sex: Female

DRUGS (6)
  1. ESCITALOPRAM [Suspect]
     Dosage: 5 MG
     Route: 048
     Dates: start: 20120905, end: 20120910
  2. MIRTAZAPIN [Interacting]
     Dosage: 15 MG
     Route: 048
     Dates: start: 20120903, end: 20120913
  3. METOPROLOL [Interacting]
     Dosage: 95 MG
     Route: 048
  4. TAFIL [Concomitant]
     Dosage: 1.5 MG
     Route: 048
     Dates: start: 20120905, end: 20120906
  5. TAFIL [Concomitant]
     Dosage: 2.5 MG
     Route: 048
     Dates: start: 20120907
  6. HCT HEXAL [Concomitant]
     Dosage: 12.5 MG
     Route: 048

REACTIONS (2)
  - Urinary retention [Recovered/Resolved]
  - Potentiating drug interaction [Recovered/Resolved]
